FAERS Safety Report 5602185-8 (Version None)
Quarter: 2008Q1

REPORT INFORMATION
  Report Type: 
  Country: None (occurrence: None)
  Receive Date: 20080125
  Receipt Date: 20080115
  Transmission Date: 20080703
  Serious: Yes (Other)
  Sender: FDA-Public Use
  Company Number: US-ASTRAZENECA-2006UW07974

PATIENT
  Age: 37 Year
  Sex: Female
  Weight: 79.5 kg

DRUGS (5)
  1. SEROQUEL [Suspect]
     Indication: SLEEP DISORDER
     Route: 048
     Dates: start: 20030101, end: 20060101
  2. SEROQUEL [Suspect]
     Indication: DEPRESSION
     Route: 048
     Dates: start: 20030101, end: 20060101
  3. PAXIL [Concomitant]
     Dates: start: 20040101
  4. TRAZODONE HCL [Concomitant]
     Dates: start: 20040101
  5. METHADONE HCL [Concomitant]
     Dates: start: 20050101

REACTIONS (4)
  - APPENDICITIS PERFORATED [None]
  - BLOOD CHOLESTEROL INCREASED [None]
  - CONVULSION [None]
  - DIABETES MELLITUS [None]
